FAERS Safety Report 8904190 (Version 4)
Quarter: 2013Q2

REPORT INFORMATION
  Report Type: Spontaneous
  Country: CA (occurrence: CA)
  Receive Date: 20121113
  Receipt Date: 20130509
  Transmission Date: 20140414
  Serious: Yes (Hospitalization, Other)
  Sender: FDA-Public Use
  Company Number: CA-ALEXION-A201201962

PATIENT
  Age: 53 Year
  Sex: Female
  Weight: 56.24 kg

DRUGS (7)
  1. SOLIRIS 300MG [Suspect]
     Indication: PAROXYSMAL NOCTURNAL HAEMOGLOBINURIA
     Dosage: 600 MG, QW
     Route: 042
     Dates: start: 20121004, end: 20121025
  2. SOLIRIS 300MG [Suspect]
     Dosage: 900 MG, Q2W
     Dates: start: 20121102
  3. SOLIRIS 300MG [Suspect]
     Dosage: UNK
     Route: 042
     Dates: start: 20130404, end: 20130404
  4. VITAMIN D [Concomitant]
     Indication: SUPPLEMENTATION THERAPY
     Dosage: 1000 IU, QD IN THE SUMMER
     Route: 048
  5. VITAMIN D [Concomitant]
     Dosage: 2000 IU, QD DURING THE WINTER
     Route: 048
  6. IMOVANE [Concomitant]
     Dosage: 5 MG, QHS PRN
     Route: 048
  7. TYLENOL [Concomitant]
     Dosage: UNK, PRN
     Route: 048

REACTIONS (7)
  - Meningitis meningococcal [Recovered/Resolved]
  - Pyrexia [Recovered/Resolved]
  - Haemoglobin decreased [Not Recovered/Not Resolved]
  - Headache [Recovered/Resolved]
  - Fatigue [Not Recovered/Not Resolved]
  - Chills [Recovered/Resolved]
  - Malaise [Unknown]
